FAERS Safety Report 5948511-1 (Version None)
Quarter: 2008Q4

REPORT INFORMATION
  Report Type: 
  Country: None (occurrence: None)
  Receive Date: 20081111
  Receipt Date: 20081031
  Transmission Date: 20090506
  Serious: Yes (Other)
  Sender: FDA-Public Use
  Company Number: B0545547A

PATIENT
  Sex: Male

DRUGS (3)
  1. KIVEXA [Suspect]
     Indication: HIV INFECTION
     Dates: start: 20060202, end: 20060228
  2. NORVIR [Suspect]
     Indication: HIV INFECTION
     Dates: start: 20060202
  3. TELZIR [Suspect]
     Indication: HIV INFECTION
     Dates: start: 20060202

REACTIONS (1)
  - DRUG RASH WITH EOSINOPHILIA AND SYSTEMIC SYMPTOMS [None]
